FAERS Safety Report 8673355 (Version 2)
Quarter: 2012Q4

REPORT INFORMATION
  Report Type: Report from Study
  Country: JP (occurrence: JP)
  Receive Date: 20120719
  Receipt Date: 20121102
  Transmission Date: 20130627
  Serious: Yes (Hospitalization, Other)
  Sender: FDA-Public Use
  Company Number: PHHY2012JP061179

PATIENT
  Age: 44 Year
  Sex: Female
  Weight: 55 kg

DRUGS (7)
  1. AFINITOR [Suspect]
     Indication: PANCREATIC NEUROENDOCRINE TUMOUR
     Dosage: 10 mg, daily
     Route: 048
     Dates: start: 20120314, end: 20120424
  2. PREDONINE [Concomitant]
     Dosage: 10 mg, UNK
     Route: 048
     Dates: start: 20120509
  3. SOL MEDROL [Concomitant]
     Dosage: 40 mg, UNK
     Dates: start: 20120428, end: 20120430
  4. PREDNISOLONE SODIUM SUCCINATE [Concomitant]
     Dosage: 10 mg, UNK
     Dates: start: 20120501, end: 20120508
  5. PROCYLIN [Concomitant]
     Dosage: 60 ug, UNK
     Route: 048
     Dates: start: 20120510, end: 20120523
  6. CISPLATIN [Concomitant]
     Dates: start: 20080326, end: 20080502
  7. GEMCITABINE [Concomitant]

REACTIONS (9)
  - Pulmonary hypertension [Recovering/Resolving]
  - Hypoxia [Recovering/Resolving]
  - Oedema peripheral [Unknown]
  - Sinus tachycardia [Recovering/Resolving]
  - Interstitial lung disease [Recovering/Resolving]
  - Dyspnoea [Unknown]
  - Pyrexia [Unknown]
  - Wheezing [Unknown]
  - Dysgeusia [Unknown]
